FAERS Safety Report 25791762 (Version 2)
Quarter: 2025Q4

REPORT INFORMATION
  Report Type: Report from Study
  Country: JP (occurrence: JP)
  Receive Date: 20250911
  Receipt Date: 20251013
  Transmission Date: 20260119
  Serious: Yes (Other)
  Sender: ALEXION PHARMACEUTICALS
  Company Number: JP-ASTRAZENECA-202506JPN027280JP

PATIENT
  Age: 67 Year
  Sex: Female

DRUGS (1)
  1. OLAPARIB [Suspect]
     Active Substance: OLAPARIB
     Indication: HER2 positive breast cancer
     Dosage: UNK
     Dates: start: 20240328, end: 20250330

REACTIONS (1)
  - Myelosuppression [Unknown]
